FAERS Safety Report 21478724 (Version 2)
Quarter: 2022Q4

REPORT INFORMATION
  Report Type: Report from Study
  Country: US (occurrence: US)
  Receive Date: 20221019
  Receipt Date: 20221022
  Transmission Date: 20230112
  Serious: Yes (Hospitalization)
  Sender: FDA-Public Use
  Company Number: US-PUMA BIOTECHNOLOGY, INC.-2022-PUM-US000833

PATIENT

DRUGS (3)
  1. NERLYNX [Suspect]
     Active Substance: NERATINIB
     Indication: Breast cancer female
     Dosage: 240 MG, DAILY AT 9AM BY MOUTH FOR 21 DAYS
     Route: 048
     Dates: start: 20220322, end: 20220922
  2. CAPECITABINE [Suspect]
     Active Substance: CAPECITABINE
     Indication: Breast cancer female
     Dosage: 1000 MG, BID
     Route: 048
     Dates: start: 20220322, end: 202205
  3. CAPECITABINE [Suspect]
     Active Substance: CAPECITABINE
     Dosage: 1150 MG TWICE DAILY FOR 14 DAYS ON, 7 DAYS OFF
     Dates: start: 20220830, end: 20220922

REACTIONS (7)
  - Renal disorder [Not Recovered/Not Resolved]
  - Cardiac disorder [Unknown]
  - Hypersensitivity [Unknown]
  - Vitamin D increased [Unknown]
  - Fatigue [Not Recovered/Not Resolved]
  - Diarrhoea [Recovering/Resolving]
  - Off label use [Unknown]

NARRATIVE: CASE EVENT DATE: 20220101
